FAERS Safety Report 12904841 (Version 18)
Quarter: 2020Q3

REPORT INFORMATION
  Report Type: Spontaneous
  Country: US (occurrence: US)
  Receive Date: 20161102
  Receipt Date: 20200708
  Transmission Date: 20201102
  Serious: Yes (Hospitalization, Other)
  Sender: FDA-Public Use
  Company Number: US-ACTELION-A-NJ2016-143755

PATIENT
  Sex: Female
  Weight: 60.32 kg

DRUGS (12)
  1. VELETRI [Suspect]
     Active Substance: EPOPROSTENOL
     Dosage: 30 NG/KG, PER MIN
     Route: 042
  2. OPSUMIT [Suspect]
     Active Substance: MACITENTAN
     Indication: PULMONARY ARTERIAL HYPERTENSION
     Dosage: UNK
     Route: 048
     Dates: start: 20160923
  3. URSODIOL. [Concomitant]
     Active Substance: URSODIOL
     Indication: HEPATIC STEATOSIS
     Dosage: 500 UNK, BID
     Route: 048
     Dates: start: 2008
  4. VELETRI [Suspect]
     Active Substance: EPOPROSTENOL
     Dosage: 11 NG/KG, PER MIN
     Route: 042
  5. XARELTO [Concomitant]
     Active Substance: RIVAROXABAN
  6. ADCIRCA [Concomitant]
     Active Substance: TADALAFIL
  7. VELETRI [Suspect]
     Active Substance: EPOPROSTENOL
     Indication: PULMONARY ARTERIAL HYPERTENSION
     Dosage: 39 NG/KG, PER MIN
     Route: 042
  8. VELETRI [Suspect]
     Active Substance: EPOPROSTENOL
     Dosage: 6 NG/KG, PER MIN
     Route: 042
     Dates: start: 20160922
  9. REVATIO [Concomitant]
     Active Substance: SILDENAFIL CITRATE
  10. VELETRI [Suspect]
     Active Substance: EPOPROSTENOL
     Dosage: 36 NG/KG, PER MIN
     Route: 042
  11. DILTIAZEM. [Concomitant]
     Active Substance: DILTIAZEM
  12. VELETRI [Suspect]
     Active Substance: EPOPROSTENOL
     Dosage: 28 NG/KG, PER MIN
     Route: 042

REACTIONS (22)
  - Fluid retention [Unknown]
  - Catheter site erythema [Unknown]
  - Hepatomegaly [Not Recovered/Not Resolved]
  - Chills [Unknown]
  - Decreased appetite [Unknown]
  - Constipation [Unknown]
  - Nausea [Unknown]
  - Catheter site pain [Unknown]
  - Diarrhoea [Unknown]
  - Eating disorder [Unknown]
  - Concomitant disease aggravated [Unknown]
  - Swelling [Unknown]
  - Weight decreased [Unknown]
  - Primary biliary cholangitis [Unknown]
  - Flushing [Unknown]
  - Blood alkaline phosphatase increased [Not Recovered/Not Resolved]
  - Pruritus [Not Recovered/Not Resolved]
  - Dyspnoea exertional [Recovered/Resolved]
  - Catheter site irritation [Unknown]
  - Fatigue [Not Recovered/Not Resolved]
  - Pain in jaw [Unknown]
  - Palpitations [Unknown]

NARRATIVE: CASE EVENT DATE: 2016
